FAERS Safety Report 19042782 (Version 1)
Quarter: 2021Q1

REPORT INFORMATION
  Report Type: Spontaneous
  Country: US (occurrence: US)
  Receive Date: 20210322
  Receipt Date: 20210322
  Transmission Date: 20210420
  Serious: Yes (Life-Threatening, Hospitalization)
  Sender: FDA-Public Use
  Company Number: None

PATIENT
  Sex: Male
  Weight: 166 kg

DRUGS (2)
  1. PRASUGREL (PRASUGREL HCL 10MG TAB) [Suspect]
     Active Substance: PRASUGREL
     Indication: CORONARY ARTERIAL STENT INSERTION
     Dosage: ?          OTHER FREQUENCY:AM;?
     Route: 048
     Dates: start: 20200420, end: 20210306
  2. ASPIRIN (ASPIRIN 81MG TAB,EC) [Suspect]
     Active Substance: ASPIRIN
     Indication: CORONARY ARTERIAL STENT INSERTION
     Dosage: ?          OTHER FREQUENCY:AM;?
     Route: 048
     Dates: start: 20160921, end: 20210306

REACTIONS (3)
  - Confusional state [None]
  - Cerebellar haemorrhage [None]
  - Dizziness [None]

NARRATIVE: CASE EVENT DATE: 20210306
